FAERS Safety Report 5360352-5 (Version None)
Quarter: 2007Q2

REPORT INFORMATION
  Report Type: 
  Country: None (occurrence: None)
  Receive Date: 20070614
  Receipt Date: 20070601
  Transmission Date: 20071010
  Serious: Yes (Other)
  Sender: FDA-Public Use
  Company Number: FEI2007-0865

PATIENT
  Age: 2 Year
  Sex: Female
  Weight: 10.7412 kg

DRUGS (3)
  1. PARAGARD T 380A [Suspect]
  2. MULTI-VITAMINS [Concomitant]
  3. FISH OIL (FISH OIL) [Concomitant]

REACTIONS (8)
  - CAESAREAN SECTION [None]
  - CERUMEN IMPACTION [None]
  - DEVELOPMENTAL DELAY [None]
  - DRUG EXPOSURE DURING PREGNANCY [None]
  - DYSKINESIA [None]
  - EAR INFECTION [None]
  - SKIN DISCOLOURATION [None]
  - SPEECH DISORDER DEVELOPMENTAL [None]
